FAERS Safety Report 4807331-1 (Version None)
Quarter: 2005Q4

REPORT INFORMATION
  Report Type: 
  Country: None (occurrence: None)
  Receive Date: 20051020
  Receipt Date: 20051020
  Transmission Date: 20060501
  Serious: Yes (Hospitalization)
  Sender: FDA-Public Use
  Company Number: None

PATIENT
  Sex: Male
  Weight: 83.4619 kg

DRUGS (5)
  1. TAXOTERE [Suspect]
     Indication: PROSTATE CANCER
     Dosage: 100MG Q3W
     Dates: start: 20051005
  2. DECADRON [Suspect]
     Indication: PROSTATE CANCER
     Dosage: 10MG Q3W
     Dates: start: 20051005
  3. ZOFRAN [Concomitant]
  4. NEUPOGEN [Concomitant]
  5. ASPIRIN [Concomitant]

REACTIONS (1)
  - DEMENTIA [None]
